FAERS Safety Report 4755744-9 (Version None)
Quarter: 2005Q3

REPORT INFORMATION
  Report Type: 
  Country: None (occurrence: None)
  Receive Date: 20050830
  Receipt Date: 20050719
  Transmission Date: 20060218
  Serious: Yes (Other)
  Sender: FDA-Public Use
  Company Number: US-BRISTOL-MYERS SQUIBB COMPANY-13043013

PATIENT
  Age: 62 Year
  Sex: Female
  Weight: 86 kg

DRUGS (9)
  1. ABILIFY [Suspect]
     Indication: HALLUCINATION, AUDITORY
     Route: 048
     Dates: start: 20040823, end: 20050620
  2. LEXAPRO [Suspect]
     Indication: DEPRESSION
     Dosage: DOSAGE: INCREASED TO 20MG DAILY ON 03-JAN-2005
     Route: 048
     Dates: start: 20041208, end: 20050207
  3. PROZAC [Suspect]
     Indication: DEPRESSION
     Dosage: DOSAGE: 20MG DAILY 07-FEB-2005 TO UNKNOWN, 40MG DAILY 24-APR-2005 TO CONTINUING
     Route: 048
  4. DEPAKOTE [Concomitant]
     Dates: start: 20040712
  5. LISINOPRIL [Concomitant]
  6. DIOVAN [Concomitant]
  7. COREG [Concomitant]
  8. WELLBUTRIN [Concomitant]
     Dosage: DOSAGE: DECREASED TO 200MG DAILY ON 11-APR-2005 AND CONTINUING
     Dates: start: 20040712
  9. HYDROCODONE BITARTRATE + ACETAMINOPHEN [Concomitant]

REACTIONS (1)
  - PARKINSONISM [None]
